FAERS Safety Report 14203268 (Version 2)
Quarter: 2017Q4

REPORT INFORMATION
  Report Type: Spontaneous
  Country: US (occurrence: US)
  Receive Date: 20171120
  Receipt Date: 20171120
  Transmission Date: 20180321
  Serious: Yes (Other)
  Sender: FDA-Public Use
  Company Number: US-BRISTOL-MYERS SQUIBB COMPANY-BMS-2017-104828

PATIENT

DRUGS (1)
  1. NIVOLUMAB [Suspect]
     Active Substance: NIVOLUMAB
     Indication: NEOPLASM
     Route: 065

REACTIONS (2)
  - Malignant neoplasm progression [Unknown]
  - Product use in unapproved indication [Unknown]
